FAERS Safety Report 8835289 (Version 2)
Quarter: 2012Q4

REPORT INFORMATION
  Report Type: 
  Country: JP (occurrence: JP)
  Receive Date: 20121011
  Receipt Date: 20121112
  Transmission Date: 20130627
  Serious: Yes (Other)
  Sender: FDA-Public Use
  Company Number: JP-JNJFOC-20120910792

PATIENT
  Age: 63 Year
  Sex: Female

DRUGS (14)
  1. RISPERDAL CONSTA [Suspect]
     Indication: PRODUCT USED FOR UNKNOWN INDICATION
     Route: 030
     Dates: start: 20120329
  2. TEGRETOL [Suspect]
     Indication: PRODUCT USED FOR UNKNOWN INDICATION
     Route: 048
     Dates: end: 20120925
  3. GASTER [Suspect]
     Indication: PRODUCT USED FOR UNKNOWN INDICATION
     Route: 048
     Dates: end: 20120921
  4. PLAVIX [Suspect]
     Indication: PRODUCT USED FOR UNKNOWN INDICATION
     Route: 048
     Dates: end: 20121004
  5. PANALDINE [Concomitant]
     Indication: PRODUCT USED FOR UNKNOWN INDICATION
     Route: 048
     Dates: end: 20120320
  6. PAKISONAL [Concomitant]
     Route: 048
  7. TASMOLIN [Concomitant]
     Route: 048
     Dates: end: 20120823
  8. TANATRIL [Concomitant]
     Route: 048
     Dates: start: 20120823
  9. RIVOTRIL [Concomitant]
     Route: 048
     Dates: end: 20120731
  10. HIBERNA [Concomitant]
     Route: 048
     Dates: end: 20120731
  11. BENZALIN [Concomitant]
     Route: 048
  12. ALMARL [Concomitant]
     Route: 048
  13. ADALAT CR [Concomitant]
     Route: 048
     Dates: start: 20120703
  14. BAYASPIRIN [Concomitant]
     Route: 048
     Dates: start: 20121004

REACTIONS (2)
  - Anaemia [Not Recovered/Not Resolved]
  - Blood creatinine increased [Not Recovered/Not Resolved]
